FAERS Safety Report 8525365-0 (Version None)
Quarter: 2012Q3

REPORT INFORMATION
  Report Type: 
  Country: None (occurrence: None)
  Receive Date: 20120720
  Receipt Date: 20120712
  Transmission Date: 20120928
  Serious: Yes (Hospitalization, Other)
  Sender: FDA-Public Use
  Company Number: US-ASTRAZENECA-2012SE02947

PATIENT
  Age: 50 Year
  Sex: Female

DRUGS (2)
  1. OMEPRAZOLE [Suspect]
  2. NEXIUM [Suspect]
     Route: 048

REACTIONS (7)
  - CEREBROVASCULAR ACCIDENT [None]
  - VOMITING [None]
  - DRUG DOSE OMISSION [None]
  - MUSCULOSKELETAL DISORDER [None]
  - GASTRIC MUCOSAL LESION [None]
  - MALAISE [None]
  - PRESYNCOPE [None]
